FAERS Safety Report 23675851 (Version 5)
Quarter: 2024Q2

REPORT INFORMATION
  Report Type: Other
  Country: CA (occurrence: None)
  Receive Date: 20240327
  Receipt Date: 20240508
  Transmission Date: 20240716
  Serious: Yes (Hospitalization, Other)
  Sender: FDA-Public Use
  Company Number: CA-ROCHE-3530362

PATIENT
  Age: 70 Year
  Sex: Female

DRUGS (1)
  1. ENSPRYNG [Suspect]
     Active Substance: SATRALIZUMAB-MWGE
     Indication: Neuromyelitis optica spectrum disorder
     Dosage: WEEK 0, 2, 4, Q4W?120 MG AT WEEKS 0, 2, AND 4 THEN EVERY 4 WEEKS.
     Route: 058
     Dates: start: 20220309

REACTIONS (12)
  - Spinal column injury [Recovering/Resolving]
  - Osteomyelitis [Not Recovered/Not Resolved]
  - Systemic lupus erythematosus [Not Recovered/Not Resolved]
  - Antiphospholipid syndrome [Not Recovered/Not Resolved]
  - Urinary tract infection [Recovered/Resolved]
  - Hernia [Recovered/Resolved]
  - Sepsis [Recovered/Resolved]
  - Platelet count decreased [Unknown]
  - Decubitus ulcer [Recovering/Resolving]
  - Haemoglobin decreased [Recovering/Resolving]
  - Haematological infection [Recovering/Resolving]
  - Blood pressure decreased [Recovering/Resolving]

NARRATIVE: CASE EVENT DATE: 20230101
